FAERS Safety Report 6678884-6 (Version None)
Quarter: 2010Q2

REPORT INFORMATION
  Report Type: 
  Country: None (occurrence: None)
  Receive Date: 20100412
  Receipt Date: 20100412
  Transmission Date: 20101027
  Serious: No
  Sender: FDA-Public Use
  Company Number: None

PATIENT
  Age: 47 Year
  Sex: Female
  Weight: 62.5964 kg

DRUGS (1)
  1. EFFEXOR XR [Suspect]
     Indication: MIGRAINE
     Dosage: 37.5 MG 1/DAY PO
     Route: 048
     Dates: start: 20100314, end: 20100323

REACTIONS (3)
  - ABDOMINAL PAIN UPPER [None]
  - HEADACHE [None]
  - PRURITUS [None]
